FAERS Safety Report 4938496-9 (Version None)
Quarter: 2006Q1

REPORT INFORMATION
  Report Type: 
  Country: None (occurrence: None)
  Receive Date: 20060302
  Receipt Date: 20060209
  Transmission Date: 20060701
  Serious: Yes (Hospitalization)
  Sender: FDA-Public Use
  Company Number: FR200601001514

PATIENT
  Age: 77 Year
  Sex: Female

DRUGS (2)
  1. FORTEO [Suspect]
     Indication: OSTEOPOROSIS
     Dosage: 20 UG, DAILY (1/D), SUBCUTANEOUS
     Route: 058
     Dates: start: 20040923, end: 20051106
  2. FORTEO PEN (FORTEO PEN) [Concomitant]

REACTIONS (6)
  - ADENOCARCINOMA PANCREAS [None]
  - BILE DUCT STONE [None]
  - BILIARY NEOPLASM [None]
  - FEMORAL NECK FRACTURE [None]
  - PYREXIA [None]
  - TREATMENT NONCOMPLIANCE [None]
